FAERS Safety Report 5610259-0 (Version None)
Quarter: 2008Q1

REPORT INFORMATION
  Report Type: 
  Country: None (occurrence: None)
  Receive Date: 20080129
  Receipt Date: 20080114
  Transmission Date: 20080703
  Serious: Yes (Death)
  Sender: FDA-Public Use
  Company Number: DSU-2008-00071

PATIENT
  Age: 37 Year
  Sex: Male

DRUGS (6)
  1. OLMESARTAN MEDOXOMIL (OLMESARTAN MEDOXOMIL) (TABLET) (OLMESARTAN MEDOX [Suspect]
     Indication: DRUG USE FOR UNKNOWN INDICATION
     Dosage: PER ORAL
     Route: 048
  2. DILTIAZEM [Suspect]
     Indication: DRUG USE FOR UNKNOWN INDICATION
  3. FOSINOPRIL (FOSINOPRIL) (FOSINOPRIL) [Suspect]
     Indication: DRUG USE FOR UNKNOWN INDICATION
  4. CELECOXIB [Suspect]
     Indication: DRUG USE FOR UNKNOWN INDICATION
  5. RAMIPRIL [Suspect]
     Indication: DRUG USE FOR UNKNOWN INDICATION
  6. PROPOXYPHENE/ ACETAMINOPHEN (PROPOXYPHENE PARACETAMOL) (PROPOXYPHENE, [Suspect]
     Indication: DRUG USE FOR UNKNOWN INDICATION

REACTIONS (1)
  - COMPLETED SUICIDE [None]
